FAERS Safety Report 6599703-2 (Version None)
Quarter: 2010Q1

REPORT INFORMATION
  Report Type: 
  Country: None (occurrence: None)
  Receive Date: 20100217
  Receipt Date: 20100204
  Transmission Date: 20100710
  Serious: Yes (Other)
  Sender: FDA-Public Use
  Company Number: 234236J09USA

PATIENT
  Age: 46 Year
  Sex: Female
  Weight: 66 kg

DRUGS (6)
  1. REBIF [Suspect]
     Indication: MULTIPLE SCLEROSIS
     Dosage: 44 MCG, 3 IN 1 WEEKS, SUBCUTANEOUS
     Route: 058
     Dates: start: 20030519
  2. GABAPENTIN [Concomitant]
  3. TIZANIDINE (TIZANDINE) [Concomitant]
  4. DIAZEPAM [Concomitant]
  5. AMBIEN [Concomitant]
  6. PROMETHAZINE [Concomitant]

REACTIONS (1)
  - OPTIC NEURITIS [None]
